FAERS Safety Report 10439481 (Version 1)
Quarter: 2014Q3

REPORT INFORMATION
  Report Type: Spontaneous
  Country: US (occurrence: US)
  Receive Date: 20140908
  Receipt Date: 20140908
  Transmission Date: 20150326
  Serious: Yes (Other)
  Sender: FDA-Public Use
  Company Number: US-BRISTOL-MYERS SQUIBB COMPANY-19211077

PATIENT
  Age: 1 Day
  Sex: Male

DRUGS (8)
  1. XANAX [Suspect]
     Active Substance: ALPRAZOLAM
     Route: 064
     Dates: end: 2013
  2. SUBUTEX [Suspect]
     Active Substance: BUPRENORPHINE HYDROCHLORIDE
     Route: 064
     Dates: end: 20130618
  3. HEROIN [Suspect]
     Active Substance: DIACETYLMORPHINE
     Route: 064
     Dates: end: 20130618
  4. NICOTINE. [Suspect]
     Active Substance: NICOTINE
     Route: 064
     Dates: end: 20130618
  5. MARIJUANA [Suspect]
     Active Substance: CANNABIS SATIVA SUBSP. INDICA TOP
     Route: 064
     Dates: end: 20130618
  6. COCAINE [Suspect]
     Active Substance: COCAINE
     Route: 064
     Dates: end: 20130618
  7. AMITRIPTYLINE [Suspect]
     Active Substance: AMITRIPTYLINE
     Route: 064
  8. ABILIFY [Suspect]
     Active Substance: ARIPIPRAZOLE
     Route: 064

REACTIONS (1)
  - Feeling jittery [Unknown]

NARRATIVE: CASE EVENT DATE: 20130618
